FAERS Safety Report 4605641-4 (Version None)
Quarter: 2005Q1

REPORT INFORMATION
  Report Type: 
  Country: None (occurrence: None)
  Receive Date: 20050310
  Receipt Date: 20041215
  Transmission Date: 20050727
  Serious: No
  Sender: FDA-Public Use
  Company Number: US-BRISTOL-MYERS SQUIBB COMPANY-12801494

PATIENT
  Age: 20 Year
  Sex: Female

DRUGS (2)
  1. MONISTAT [Suspect]
     Indication: VAGINAL MYCOSIS
     Route: 067
     Dates: start: 20041214, end: 20041214
  2. ALBUTEROL [Concomitant]

REACTIONS (4)
  - GENITAL BURNING SENSATION [None]
  - VAGINAL SWELLING [None]
  - VULVAL ERYTHEMA [None]
  - VULVOVAGINAL DISCOMFORT [None]
